FAERS Safety Report 4472199-2 (Version None)
Quarter: 2004Q4

REPORT INFORMATION
  Report Type: 
  Country: None (occurrence: None)
  Receive Date: 20041012
  Receipt Date: 20041005
  Transmission Date: 20050328
  Serious: Yes (Disabling, Other)
  Sender: FDA-Public Use
  Company Number: US-MERCK-0410USA00609

PATIENT
  Age: 44 Year
  Sex: Male

DRUGS (4)
  1. [THERAPY UNSPECIFIED] [Concomitant]
     Route: 065
  2. IBUPROFEN [Concomitant]
     Route: 065
  3. VIOXX [Suspect]
     Indication: ARTHRITIS
     Route: 048
     Dates: start: 20020101, end: 20041005
  4. AMBIEN [Concomitant]
     Route: 065

REACTIONS (4)
  - CEREBROVASCULAR ACCIDENT [None]
  - CHEST PAIN [None]
  - DYSPNOEA [None]
  - MYOCARDIAL INFARCTION [None]
